FAERS Safety Report 4619863-X (Version None)
Quarter: 2005Q1

REPORT INFORMATION
  Report Type: 
  Country: None (occurrence: None)
  Receive Date: 20050328
  Receipt Date: 20050315
  Transmission Date: 20050727
  Serious: Yes (Hospitalization)
  Sender: FDA-Public Use
  Company Number: CA-JNJFOC-20050301569

PATIENT
  Sex: Female
  Weight: 56 kg

DRUGS (5)
  1. REMICADE [Suspect]
     Indication: CROHN'S DISEASE
     Route: 042
  2. IMURAN [Concomitant]
     Indication: CROHN'S DISEASE
     Dosage: DAILY
  3. CIPROFLOXACIN HCL [Concomitant]
  4. BUSCOPAN [Concomitant]
  5. IMOVANE [Concomitant]

REACTIONS (8)
  - CARDIAC MURMUR [None]
  - DEPRESSION [None]
  - DRUG INEFFECTIVE [None]
  - FAECALOMA [None]
  - FLUID INTAKE REDUCED [None]
  - HYPOALBUMINAEMIA [None]
  - INADEQUATE DIET [None]
  - MUSCLE ATROPHY [None]
